FAERS Safety Report 4875569-3 (Version None)
Quarter: 2006Q1

REPORT INFORMATION
  Report Type: 
  Country: None (occurrence: None)
  Receive Date: 20060105
  Receipt Date: 20051222
  Transmission Date: 20060701
  Serious: Yes (Hospitalization)
  Sender: FDA-Public Use
  Company Number: S05-UKI-05340-01

PATIENT
  Sex: Female

DRUGS (1)
  1. CITALOPRAM HYDROBROMIDE [Suspect]
     Dosage: 50 MG QD PO
     Route: 048

REACTIONS (3)
  - AGITATION [None]
  - ALCOHOL POISONING [None]
  - INTENTIONAL SELF-INJURY [None]
